FAERS Safety Report 6108713-0 (Version None)
Quarter: 2009Q1

REPORT INFORMATION
  Report Type: 
  Country: None (occurrence: None)
  Receive Date: 20090310
  Receipt Date: 20090302
  Transmission Date: 20090719
  Serious: Yes (Hospitalization)
  Sender: FDA-Public Use
  Company Number: GB-RANBAXY-2009RR-22291

PATIENT
  Age: 45 Year
  Sex: Male

DRUGS (7)
  1. ENALAPRIL MALEATE [Suspect]
     Indication: CEREBROVASCULAR ACCIDENT
     Dosage: 20 MG, QD
     Route: 048
     Dates: start: 20000101, end: 20081211
  2. AMLODIPINE [Concomitant]
     Indication: HYPERTENSION
     Dosage: 10 MG, QD
     Route: 048
  3. ASPIRIN [Concomitant]
     Dosage: 75 MG, QD
     Route: 048
  4. ATORVASTATIN [Concomitant]
     Dosage: 40 MG, QD
     Route: 048
  5. DIPYRIDAMOLE [Concomitant]
     Dosage: 200 MG, BID
     Route: 048
  6. LANTUS [Concomitant]
     Indication: TYPE 1 DIABETES MELLITUS
     Dosage: 12 IU, UNK
     Route: 058
  7. NOVORAPID [Concomitant]
     Route: 058

REACTIONS (6)
  - BACK DISORDER [None]
  - DYSPNOEA [None]
  - EYE SWELLING [None]
  - LIP SWELLING [None]
  - RASH [None]
  - SWELLING FACE [None]
